FAERS Safety Report 5444672-1 (Version None)
Quarter: 2007Q3

REPORT INFORMATION
  Report Type: 
  Country: None (occurrence: None)
  Receive Date: 20070827
  Receipt Date: 20070815
  Transmission Date: 20080115
  Serious: Yes (Other)
  Sender: FDA-Public Use
  Company Number: CHNY2007NZ02911

PATIENT
  Sex: Female

DRUGS (1)
  1. NICOTINE [Suspect]
     Dosage: TASTED A PIECE OF HABITROL TO DETERMINE THE, CHEWED

REACTIONS (1)
  - INTENTIONAL DRUG MISUSE [None]
